FAERS Safety Report 7446157-X (Version None)
Quarter: 2011Q2

REPORT INFORMATION
  Report Type: 
  Country: None (occurrence: None)
  Receive Date: 20110429
  Receipt Date: 20110422
  Transmission Date: 20111010
  Serious: Yes (Death, Life-Threatening)
  Sender: FDA-Public Use
  Company Number: B0715283A

PATIENT
  Sex: Male
  Weight: 74 kg

DRUGS (3)
  1. ALKERAN [Suspect]
     Indication: CORD BLOOD TRANSPLANT THERAPY
     Dosage: 75MG PER DAY
     Route: 042
     Dates: start: 20070619, end: 20070620
  2. FLUDARA [Suspect]
     Indication: CORD BLOOD TRANSPLANT THERAPY
     Dosage: 46MG PER DAY
     Route: 042
     Dates: start: 20070614, end: 20070618
  3. TACROLIMUS HYDRATE [Concomitant]
     Indication: IMMUNOSUPPRESSION
     Dosage: 2MG PER DAY
     Route: 065
     Dates: start: 20070621, end: 20070717

REACTIONS (2)
  - HEPATIC VEIN OCCLUSION [None]
  - HISTIOCYTOSIS HAEMATOPHAGIC [None]
